FAERS Safety Report 8600166 (Version 2)
Quarter: 2013Q3

REPORT INFORMATION
  Report Type: Report from Study
  Country: FR (occurrence: FR)
  Receive Date: 20120605
  Receipt Date: 20130927
  Transmission Date: 20140515
  Serious: Yes (Other)
  Sender: FDA-Public Use
  Company Number: FR-ROCHE-1073822

PATIENT
  Age: 49 Year
  Sex: Female
  Weight: 37 kg

DRUGS (1)
  1. BEVACIZUMAB [Suspect]
     Indication: HER-2 POSITIVE BREAST CANCER
     Route: 065
     Dates: start: 20100621, end: 20110610

REACTIONS (1)
  - Ill-defined disorder [Unknown]
